FAERS Safety Report 9005724 (Version 1)
Quarter: 2013Q1

REPORT INFORMATION
  Report Type: Report from Study
  Country: US (occurrence: US)
  Receive Date: 20130109
  Receipt Date: 20130109
  Transmission Date: 20140127
  Serious: Yes (Hospitalization)
  Sender: FDA-Public Use
  Company Number: US-ABBOTT-12P-163-0978447-00

PATIENT
  Sex: Female
  Weight: 117.13 kg

DRUGS (1)
  1. VICODIN [Suspect]
     Indication: KIDNEY INFECTION
     Dates: start: 1990, end: 1990

REACTIONS (1)
  - Anaphylactic reaction [Recovered/Resolved]
